FAERS Safety Report 17947028 (Version 2)
Quarter: 2020Q2

REPORT INFORMATION
  Report Type: Spontaneous
  Country: US (occurrence: US)
  Receive Date: 20200625
  Receipt Date: 20200625
  Transmission Date: 20200714
  Serious: Yes (Death, Other)
  Sender: FDA-Public Use
  Company Number: US-ENDO PHARMACEUTICALS INC-2020-004402

PATIENT
  Age: 69 Year

DRUGS (4)
  1. ZOFRAN [Suspect]
     Active Substance: ONDANSETRON HYDROCHLORIDE
     Indication: PRODUCT USED FOR UNKNOWN INDICATION
     Dosage: UNK UNKNOWN, UNKNOWN
     Route: 048
  2. NORCO [Suspect]
     Active Substance: ACETAMINOPHEN\HYDROCODONE BITARTRATE
     Indication: PRODUCT USED FOR UNKNOWN INDICATION
     Dosage: UNK UNKNOWN, UNKNOWN
     Route: 048
  3. IBUPROFEN. [Suspect]
     Active Substance: IBUPROFEN
     Indication: PRODUCT USED FOR UNKNOWN INDICATION
     Dosage: UNK UNKNOWN, UNKNOWN
     Route: 048
  4. XANAX [Suspect]
     Active Substance: ALPRAZOLAM
     Indication: PRODUCT USED FOR UNKNOWN INDICATION
     Dosage: UNK UNKNOWN, UNKNOWN
     Route: 048

REACTIONS (11)
  - Lethargy [Unknown]
  - Aspartate aminotransferase abnormal [Unknown]
  - Acidosis [Unknown]
  - Somnolence [Unknown]
  - Bradycardia [Unknown]
  - Blood creatinine increased [Unknown]
  - Alanine aminotransferase abnormal [Unknown]
  - Death [Fatal]
  - Respiratory depression [Unknown]
  - Cardiac arrest [Unknown]
  - Prothrombin time prolonged [Unknown]

NARRATIVE: CASE EVENT DATE: 201709
